FAERS Safety Report 12166228 (Version 1)
Quarter: 2016Q1

REPORT INFORMATION
  Report Type: Spontaneous
  Country: CH (occurrence: CH)
  Receive Date: 20160309
  Receipt Date: 20160309
  Transmission Date: 20160526
  Serious: Yes (Other)
  Sender: FDA-Public Use
  Company Number: CH-PFIZER INC-2016141790

PATIENT
  Age: 73 Year
  Sex: Female

DRUGS (2)
  1. EXEMESTANE. [Suspect]
     Active Substance: EXEMESTANE
     Indication: BREAST CANCER
     Dosage: UNK
     Dates: start: 201501
  2. AFINITOR [Suspect]
     Active Substance: EVEROLIMUS
     Indication: BREAST CANCER
     Dosage: 5 MG, UNK
     Dates: start: 201501

REACTIONS (7)
  - Diverticulitis [Unknown]
  - Productive cough [Unknown]
  - Fatigue [Unknown]
  - Pneumonitis [Unknown]
  - Mouth ulceration [Unknown]
  - Cough [Unknown]
  - Neutropenia [Unknown]

NARRATIVE: CASE EVENT DATE: 201508
